FAERS Safety Report 21047138 (Version 3)
Quarter: 2023Q1

REPORT INFORMATION
  Report Type: Spontaneous
  Country: JP (occurrence: JP)
  Receive Date: 20220706
  Receipt Date: 20230324
  Transmission Date: 20230418
  Serious: Yes (Death, Other)
  Sender: FDA-Public Use
  Company Number: JP-BAYER-2022A092296

PATIENT
  Age: 74 Year
  Sex: Female
  Weight: 45 kg

DRUGS (6)
  1. ADEMPAS [Suspect]
     Active Substance: RIOCIGUAT
     Indication: Pulmonary arterial hypertension
     Dosage: DAILY DOSE 3 MG
     Route: 048
     Dates: start: 20201012, end: 20201022
  2. ADEMPAS [Suspect]
     Active Substance: RIOCIGUAT
     Indication: Pulmonary arterial hypertension
     Dosage: DAILY DOSE 4.5 MG
     Route: 048
     Dates: start: 20201023, end: 20201026
  3. ADEMPAS [Suspect]
     Active Substance: RIOCIGUAT
     Indication: Pulmonary arterial hypertension
     Dosage: DAILY DOSE 6 MG
     Route: 048
     Dates: start: 20201027, end: 20201030
  4. SAMSCA [Concomitant]
     Active Substance: TOLVAPTAN
     Dosage: DAILY DOSE 7.5 MG
     Route: 048
     Dates: start: 20201008, end: 20201028
  5. OPSUMIT [Concomitant]
     Active Substance: MACITENTAN
     Indication: Pulmonary arterial hypertension
     Dosage: DAILY DOSE 10 MG
     Route: 048
     Dates: start: 20201009, end: 20201105
  6. AZOSEMIDE [Concomitant]
     Active Substance: AZOSEMIDE
     Dosage: DAILY DOSE 15 MG
     Route: 048
     Dates: start: 20201008, end: 20201026

REACTIONS (10)
  - Blood pressure decreased [Fatal]
  - Pulmonary arterial hypertension [Fatal]
  - Pneumonia aspiration [None]
  - Sepsis [None]
  - Acute kidney injury [None]
  - Haemodynamic instability [None]
  - Oliguria [None]
  - Oxygen saturation decreased [None]
  - Infection [None]
  - Anaemia [None]

NARRATIVE: CASE EVENT DATE: 20201013
